FAERS Safety Report 10422920 (Version 1)
Quarter: 2014Q3

REPORT INFORMATION
  Report Type: Spontaneous
  Country: NO (occurrence: NO)
  Receive Date: 20140902
  Receipt Date: 20140902
  Transmission Date: 20150326
  Serious: Yes (Hospitalization)
  Sender: FDA-Public Use
  Company Number: NO-009507513-1409NOR000193

PATIENT
  Sex: Female

DRUGS (7)
  1. KETORAX [Concomitant]
     Active Substance: KETOBEMIDONE HYDROCHLORIDE
     Dosage: UNK
  2. ALLOPUR [Concomitant]
     Active Substance: ALLOPURINOL
     Dosage: UNK
  3. EPINAT [Concomitant]
     Dosage: UNK
  4. DEXAMETHASONE. [Concomitant]
     Active Substance: DEXAMETHASONE
     Dosage: UNK
  5. EMEND [Suspect]
     Active Substance: APREPITANT
     Indication: NAUSEA
     Dosage: STRENGTH: 152MG + 80MG + 80MG
     Route: 048
     Dates: start: 20140325, end: 20140327
  6. ZOFRAN [Concomitant]
     Active Substance: ONDANSETRON HYDROCHLORIDE
     Dosage: UNK
  7. AFIPRAN [Concomitant]
     Dosage: UNK

REACTIONS (4)
  - Mucosal haemorrhage [Recovered/Resolved with Sequelae]
  - Mucosal pain [Recovered/Resolved with Sequelae]
  - Hepatosplenic candidiasis [Unknown]
  - Mucosal inflammation [Recovered/Resolved with Sequelae]

NARRATIVE: CASE EVENT DATE: 201403
